FAERS Safety Report 10483934 (Version 1)
Quarter: 2014Q3

REPORT INFORMATION
  Report Type: Spontaneous
  Country: RU (occurrence: RU)
  Receive Date: 20140930
  Receipt Date: 20140930
  Transmission Date: 20150326
  Serious: Yes (Hospitalization)
  Sender: FDA-Public Use
  Company Number: RU-BAYER-2014-144635

PATIENT
  Age: 38 Year
  Sex: Female

DRUGS (1)
  1. YARINA [Suspect]
     Active Substance: DROSPIRENONE\ETHINYL ESTRADIOL
     Dosage: UNK
     Dates: start: 2009

REACTIONS (7)
  - Hemiparesis [None]
  - Headache [None]
  - Cerebral cyst [None]
  - Muscular weakness [None]
  - Blood pressure increased [None]
  - Cerebral infarction [None]
  - Cholelithiasis [None]

NARRATIVE: CASE EVENT DATE: 201403
